FAERS Safety Report 23430032 (Version 4)
Quarter: 2024Q1

REPORT INFORMATION
  Report Type: Report from Study
  Country: IT (occurrence: IT)
  Receive Date: 20240122
  Receipt Date: 20240301
  Transmission Date: 20240410
  Serious: Yes (Hospitalization, Other)
  Sender: FDA-Public Use
  Company Number: IT-ABBVIE-5594670

PATIENT
  Age: 86 Year
  Sex: Female

DRUGS (2)
  1. CARBIDOPA\LEVODOPA [Suspect]
     Active Substance: CARBIDOPA\LEVODOPA
     Indication: Parkinson^s disease
     Dosage: TOTAL DAILY DOSE (MG) : 905 PUMP SETTING: MD: 4+3 CR: 2,5 (14H), ED: 2,5
     Route: 050
     Dates: start: 20141006
  2. CARBIDOPA\LEVODOPA [Suspect]
     Active Substance: CARBIDOPA\LEVODOPA
     Dosage: TOTAL DAILY DOSE (MG) : 905 PUMP SETTING: MD: 4+3 CR: 2,5 (14H), ED: 2,5
     Route: 050

REACTIONS (5)
  - Internal haemorrhage [Recovered/Resolved]
  - Medical device site ulcer [Recovered/Resolved]
  - General physical health deterioration [Not Recovered/Not Resolved]
  - Intestinal obstruction [Unknown]
  - Intentional product misuse [Not Recovered/Not Resolved]

NARRATIVE: CASE EVENT DATE: 20240101
